FAERS Safety Report 16195471 (Version 3)
Quarter: 2019Q2

REPORT INFORMATION
  Report Type: Spontaneous
  Country: US (occurrence: US)
  Receive Date: 20190415
  Receipt Date: 20190618
  Transmission Date: 20190711
  Serious: No
  Sender: FDA-Public Use
  Company Number: US-GW PHARMA-201901USGW0114

PATIENT

DRUGS (3)
  1. REVIA [Concomitant]
     Active Substance: NALTREXONE HYDROCHLORIDE
     Indication: PRODUCT USED FOR UNKNOWN INDICATION
     Dosage: UNK
     Route: 065
  2. EPIDIOLEX [Suspect]
     Active Substance: CANNABIDIOL
     Indication: LENNOX-GASTAUT SYNDROME
     Dosage: 280 MILLIGRAM
     Route: 048
     Dates: start: 20190110
  3. EPIDIOLEX [Suspect]
     Active Substance: CANNABIDIOL
     Dosage: 560 MILLIGRAM
     Dates: start: 20190117

REACTIONS (1)
  - Rash pruritic [Recovered/Resolved]
